FAERS Safety Report 14138023 (Version 3)
Quarter: 2017Q4

REPORT INFORMATION
  Report Type: Report from Study
  Country: US (occurrence: US)
  Receive Date: 20171027
  Receipt Date: 20171207
  Transmission Date: 20180321
  Serious: Yes (Hospitalization, Other)
  Sender: FDA-Public Use
  Company Number: US-GILEAD-2017-0301446

PATIENT
  Age: 75 Year
  Sex: Male
  Weight: 97.96 kg

DRUGS (32)
  1. RANOLAZINE. [Suspect]
     Active Substance: RANOLAZINE
     Indication: CHEST PAIN
     Dosage: 500 MG, BID
     Route: 048
     Dates: start: 20160307
  2. NIFEREX                            /00023531/ [Concomitant]
  3. ATORVASTATIN [Concomitant]
     Active Substance: ATORVASTATIN
  4. TAMSULOSIN [Concomitant]
     Active Substance: TAMSULOSIN
  5. MIRALAX [Concomitant]
     Active Substance: POLYETHYLENE GLYCOL 3350
  6. RANOLAZINE. [Suspect]
     Active Substance: RANOLAZINE
     Indication: ANGINA PECTORIS
     Dosage: 500 MG, UNK
     Route: 048
     Dates: start: 20141023
  7. LOSARTAN. [Concomitant]
     Active Substance: LOSARTAN
  8. CORDARONE [Concomitant]
     Active Substance: AMIODARONE HYDROCHLORIDE
  9. ONDANSETRON [Concomitant]
     Active Substance: ONDANSETRON
  10. RANOLAZINE. [Suspect]
     Active Substance: RANOLAZINE
     Indication: DYSPNOEA
     Dosage: 500 MG, UNK
     Route: 048
     Dates: start: 201702
  11. IMDUR [Concomitant]
     Active Substance: ISOSORBIDE MONONITRATE
  12. VITAMIN D3 [Concomitant]
     Active Substance: CHOLECALCIFEROL
  13. SUPER B COMPLEX                    /01995301/ [Concomitant]
     Active Substance: CYANOCOBALAMIN\DEXPANTHENOL\NIACINAMIDE\PYRIDOXINE HYDROCHLORIDE\RIBOFLAVIN 5^-PHOSPHATE SODIUM\THIAMINE HYDROCHLORIDE\VITAMIN B COMPLEX
  14. FAMOTIDINE. [Concomitant]
     Active Substance: FAMOTIDINE
  15. FERREX [Concomitant]
     Active Substance: FERRIC POLYSACCHARIDE COMPLEX
  16. VITAMIN C [Concomitant]
     Active Substance: ASCORBIC ACID
  17. MIRTAZAPINE. [Concomitant]
     Active Substance: MIRTAZAPINE
  18. KCL [Concomitant]
     Active Substance: POTASSIUM CHLORIDE
  19. ZOLPIDEM [Concomitant]
     Active Substance: ZOLPIDEM\ZOLPIDEM TARTRATE
  20. NEXIUM [Concomitant]
     Active Substance: ESOMEPRAZOLE MAGNESIUM
  21. ATIVAN [Concomitant]
     Active Substance: LORAZEPAM
  22. TYLENOL [Concomitant]
     Active Substance: ACETAMINOPHEN
  23. MELOXICAM. [Concomitant]
     Active Substance: MELOXICAM
  24. METOPROLOL TARTRATE. [Concomitant]
     Active Substance: METOPROLOL TARTRATE
  25. PRAVASTATIN. [Concomitant]
     Active Substance: PRAVASTATIN
  26. ASA [Concomitant]
     Active Substance: ASPIRIN
  27. PROTONIX                           /00661201/ [Concomitant]
     Active Substance: OMEPRAZOLE
  28. ENALAPRIL [Concomitant]
     Active Substance: ENALAPRIL
  29. PLAVIX [Concomitant]
     Active Substance: CLOPIDOGREL BISULFATE
  30. METOCLOPRAMIDE. [Concomitant]
     Active Substance: METOCLOPRAMIDE
  31. XANAX [Concomitant]
     Active Substance: ALPRAZOLAM
  32. TRAZODONE [Concomitant]
     Active Substance: TRAZODONE HYDROCHLORIDE

REACTIONS (5)
  - Dementia [Not Recovered/Not Resolved]
  - Dyspnoea [Unknown]
  - Product use issue [Recovered/Resolved]
  - Confusional state [Unknown]
  - Intentional product use issue [Recovered/Resolved]

NARRATIVE: CASE EVENT DATE: 201602
